FAERS Safety Report 24302201 (Version 2)
Quarter: 2024Q3

REPORT INFORMATION
  Report Type: Spontaneous
  Country: GB (occurrence: GB)
  Receive Date: 20240910
  Receipt Date: 20240912
  Transmission Date: 20241016
  Serious: Yes (Other)
  Sender: MYLAN
  Company Number: GB-MYLANLABS-2024M1081878

PATIENT
  Sex: Female

DRUGS (1)
  1. TOBI PODHALER [Suspect]
     Active Substance: TOBRAMYCIN
     Indication: Cystic fibrosis
     Dosage: 4 DOSAGE FORM, BID (4 CAPSULES IN THE MORNING AND 4 CAPSULES IN THE EVENING)
     Route: 055

REACTIONS (2)
  - Rib fracture [Unknown]
  - Off label use [Unknown]
